FAERS Safety Report 8352494-7 (Version None)
Quarter: 2012Q2

REPORT INFORMATION
  Report Type: 
  Country: None (occurrence: None)
  Receive Date: 20120511
  Receipt Date: 20120504
  Transmission Date: 20120825
  Serious: Yes (Other)
  Sender: FDA-Public Use
  Company Number: PHHY2011AR73242

PATIENT
  Sex: Male

DRUGS (2)
  1. TASIGNA [Suspect]
     Indication: CHRONIC MYELOID LEUKAEMIA
     Dosage: 200 MG, UNK
     Dates: start: 20110801
  2. TASIGNA [Suspect]
     Dosage: 800 MG DAILY

REACTIONS (9)
  - BLOOD CHOLESTEROL INCREASED [None]
  - HOT FLUSH [None]
  - BLOOD URIC ACID INCREASED [None]
  - DYSPNOEA [None]
  - CARDIAC HYPERTROPHY [None]
  - RASH PRURITIC [None]
  - PRURITUS GENERALISED [None]
  - BRONCHITIS [None]
  - CARDIAC DISORDER [None]
